FAERS Safety Report 10087059 (Version 1)
Quarter: 2014Q2

REPORT INFORMATION
  Report Type: Spontaneous
  Country: US (occurrence: US)
  Receive Date: 20140418
  Receipt Date: 20140418
  Transmission Date: 20141212
  Serious: No
  Sender: FDA-Public Use
  Company Number: US-TEVA-476316USA

PATIENT
  Age: 33 Year
  Sex: Female
  Weight: 78.54 kg

DRUGS (2)
  1. PARAGARD 380A [Suspect]
     Indication: CONTRACEPTION
     Route: 015
     Dates: start: 20140321, end: 20140414
  2. DEPO-PROVERA [Concomitant]
     Indication: CONTRACEPTION
     Dates: end: 201402

REACTIONS (1)
  - Vaginal haemorrhage [Unknown]
